FAERS Safety Report 14875360 (Version 1)
Quarter: 2018Q2

REPORT INFORMATION
  Report Type: Report from Study
  Country: CN (occurrence: CN)
  Receive Date: 20180510
  Receipt Date: 20180510
  Transmission Date: 20180711
  Serious: Yes (Hospitalization)
  Sender: FDA-Public Use
  Company Number: CN-SA-2018SA103807

PATIENT
  Age: 50 Year
  Sex: Male
  Weight: 56 kg

DRUGS (6)
  1. METHYLPREDNISOLONE. [Suspect]
     Active Substance: METHYLPREDNISOLONE
     Indication: BONE MARROW CONDITIONING REGIMEN
     Route: 065
     Dates: start: 2018
  2. THYMOGLOBULINE [Suspect]
     Active Substance: LAPINE T-LYMPHOCYTE IMMUNE GLOBULIN
     Indication: BONE MARROW CONDITIONING REGIMEN
     Route: 042
     Dates: start: 20180207, end: 20180207
  3. THYMOGLOBULINE [Suspect]
     Active Substance: LAPINE T-LYMPHOCYTE IMMUNE GLOBULIN
     Indication: BONE MARROW CONDITIONING REGIMEN
     Route: 042
     Dates: start: 20180208, end: 20180211
  4. THYMOGLOBULINE [Suspect]
     Active Substance: LAPINE T-LYMPHOCYTE IMMUNE GLOBULIN
     Indication: BONE MARROW CONDITIONING REGIMEN
     Route: 042
     Dates: start: 20180212, end: 20180212
  5. SMECTA [Concomitant]
     Active Substance: MONTMORILLONITE
     Route: 065
  6. RIFAPENTINE [Concomitant]
     Active Substance: RIFAPENTINE

REACTIONS (1)
  - Tuberculous pleurisy [Recovered/Resolved]

NARRATIVE: CASE EVENT DATE: 20180404
